FAERS Safety Report 10612709 (Version 2)
Quarter: 2014Q4

REPORT INFORMATION
  Report Type: Spontaneous
  Country: BE (occurrence: BE)
  Receive Date: 20141127
  Receipt Date: 20141229
  Transmission Date: 20150529
  Serious: Yes (Other)
  Sender: FDA-Public Use
  Company Number: BE-BEH-2014046561

PATIENT
  Age: 21 Year
  Sex: Male

DRUGS (1)
  1. PRIVIGEN [Suspect]
     Active Substance: HUMAN IMMUNOGLOBULIN G
     Indication: IMMUNOGLOBULINS DECREASED
     Dosage: LOW DOSE
     Route: 042
     Dates: start: 20140808, end: 20140811

REACTIONS (4)
  - Anti A antibody positive [Recovered/Resolved]
  - Anti-erythrocyte antibody positive [Recovered/Resolved]
  - Coombs direct test positive [Recovered/Resolved]
  - Transfusion reaction [Recovered/Resolved]

NARRATIVE: CASE EVENT DATE: 201408
